FAERS Safety Report 4654102-5 (Version None)
Quarter: 2005Q2

REPORT INFORMATION
  Report Type: 
  Country: None (occurrence: None)
  Receive Date: 20050505
  Receipt Date: 20050429
  Transmission Date: 20051028
  Serious: Yes (Hospitalization)
  Sender: FDA-Public Use
  Company Number: CM-MERCK-0505USA00108

PATIENT
  Age: 43 Year
  Sex: Male

DRUGS (1)
  1. MECTIZAN [Suspect]
     Route: 048
     Dates: start: 20050322, end: 20050322

REACTIONS (5)
  - ABNORMAL BEHAVIOUR [None]
  - AGITATION [None]
  - DYSSTASIA [None]
  - PAIN [None]
  - PYREXIA [None]
